FAERS Safety Report 14375870 (Version 4)
Quarter: 2018Q2

REPORT INFORMATION
  Report Type: Report from Study
  Country: US (occurrence: US)
  Receive Date: 20180111
  Receipt Date: 20180521
  Transmission Date: 20180711
  Serious: Yes (Other)
  Sender: FDA-Public Use
  Company Number: US-AMGEN-USASL2017189067

PATIENT
  Age: 71 Year
  Sex: Male

DRUGS (3)
  1. REPATHA [Suspect]
     Active Substance: EVOLOCUMAB
     Indication: HYPERLIPIDAEMIA
  2. REPATHA [Suspect]
     Active Substance: EVOLOCUMAB
     Indication: BLOOD CHOLESTEROL INCREASED
     Dosage: 140 MG, Q2WK
     Route: 065
  3. REPATHA [Suspect]
     Active Substance: EVOLOCUMAB
     Indication: BLOOD CHOLESTEROL ABNORMAL
     Dosage: 140 MG, QMO
     Route: 065

REACTIONS (11)
  - Dry mouth [Unknown]
  - Sneezing [Unknown]
  - Sputum discoloured [Unknown]
  - Mass [Unknown]
  - Swelling [Unknown]
  - Malaise [Recovered/Resolved]
  - Metastatic neoplasm [Not Recovered/Not Resolved]
  - Nasal congestion [Recovered/Resolved]
  - Nasal dryness [Unknown]
  - Pain [Unknown]
  - Blood cholesterol decreased [Unknown]

NARRATIVE: CASE EVENT DATE: 2016
